FAERS Safety Report 11180968 (Version 1)
Quarter: 2015Q2

REPORT INFORMATION
  Report Type: Spontaneous
  Country: US (occurrence: US)
  Receive Date: 20150611
  Receipt Date: 20150611
  Transmission Date: 20150821
  Serious: Yes (Other)
  Sender: FDA-Public Use
  Company Number: US-AKORN PHARMACEUTICALS-2015AKN00241

PATIENT
  Sex: Female

DRUGS (8)
  1. ADDERALL [Concomitant]
     Active Substance: AMPHETAMINE ASPARTATE\AMPHETAMINE SULFATE\DEXTROAMPHETAMINE SACCHARATE\DEXTROAMPHETAMINE SULFATE
     Dosage: 20 MG, 2X/DAY
     Route: 048
  2. UNSPECIFIED BIRTH CONTROL [Concomitant]
     Active Substance: UNSPECIFIED INGREDIENT
  3. EPIDUO [Concomitant]
     Active Substance: ADAPALENE\BENZOYL PEROXIDE
     Indication: ACNE
     Route: 061
  4. MULTIVITAMIN [Concomitant]
     Active Substance: VITAMINS
  5. CLOBETASOL 0.05 % EXTERNAL CREAM [Concomitant]
     Indication: ECZEMA
     Dosage: UNK, 2X/DAY
     Route: 061
  6. MYORISAN [Suspect]
     Active Substance: ISOTRETINOIN
     Dosage: 40 MG, 2X/DAY
     Dates: start: 20150309, end: 20150406
  7. CALCIUM [Concomitant]
     Active Substance: CALCIUM
     Dosage: UNK UNK, 1X/DAY
  8. MYORISAN [Suspect]
     Active Substance: ISOTRETINOIN
     Indication: ACNE
     Dosage: 40 MG, 1X/DAY
     Route: 048
     Dates: start: 201411, end: 20150308

REACTIONS (12)
  - Suicide attempt [Recovered/Resolved]
  - Pain [Unknown]
  - Melaena [Unknown]
  - Irritability [Recovered/Resolved]
  - Depression [Recovered/Resolved]
  - Suicidal ideation [Recovered/Resolved]
  - Hand dermatitis [Unknown]
  - Xerosis [Unknown]
  - Anxiety [Recovered/Resolved]
  - Night blindness [Unknown]
  - Headache [Unknown]
  - Skin exfoliation [Unknown]
